FAERS Safety Report 8549227-8 (Version None)
Quarter: 2012Q3

REPORT INFORMATION
  Report Type: 
  Country: None (occurrence: None)
  Receive Date: 20120730
  Receipt Date: 20120719
  Transmission Date: 20120928
  Serious: Yes (Other)
  Sender: FDA-Public Use
  Company Number: JP-VERTEX PHARMACEUTICALS INC.-AE-2012-010883

PATIENT
  Age: 52 Year
  Sex: Male

DRUGS (14)
  1. TELAVIC (TELAPREVIR) [Suspect]
     Indication: HEPATITIS C
     Route: 048
     Dates: start: 20120606
  2. PEG-INTRON [Concomitant]
     Dates: start: 20120705
  3. REBETOL [Concomitant]
     Indication: HEPATITIS C
     Route: 048
     Dates: start: 20120606, end: 20120626
  4. REBETOL [Concomitant]
     Route: 048
     Dates: start: 20120711
  5. AMARYL [Concomitant]
     Route: 048
     Dates: start: 20110513
  6. JANUVIA [Concomitant]
     Route: 048
     Dates: start: 20110819
  7. RABEPRAZOLE SODIUM [Concomitant]
     Route: 048
     Dates: start: 20120613
  8. PEG-INTRON [Concomitant]
     Indication: HEPATITIS C
     Route: 058
     Dates: start: 20120606, end: 20120626
  9. BASEN [Concomitant]
     Route: 048
     Dates: start: 20120513
  10. PEG-INTRON [Concomitant]
     Route: 058
     Dates: start: 20120627, end: 20120704
  11. URSO 250 [Concomitant]
     Route: 048
     Dates: start: 20120620
  12. REBETOL [Concomitant]
     Route: 048
     Dates: start: 20120627, end: 20120703
  13. ALLOPURINOL [Concomitant]
     Route: 048
     Dates: start: 20120606
  14. CANDESARTAN CILEXETIL [Concomitant]
     Route: 048
     Dates: start: 20110513

REACTIONS (1)
  - RENAL IMPAIRMENT [None]
